FAERS Safety Report 4524549-6 (Version None)
Quarter: 2004Q4

REPORT INFORMATION
  Report Type: 
  Country: None (occurrence: None)
  Receive Date: 20041117
  Receipt Date: 20040518
  Transmission Date: 20050328
  Serious: Yes (Hospitalization)
  Sender: FDA-Public Use
  Company Number: US-JNJFOC-20040304548

PATIENT
  Age: 32 Year
  Sex: Male

DRUGS (2)
  1. LEVAQUIN [Suspect]
     Indication: DRUG USE FOR UNKNOWN INDICATION
     Dosage: 500 MG, 1 IN 1 DAY, ORAL
     Route: 048
     Dates: start: 20030625
  2. TRILEPTAL [Suspect]
     Indication: PROPHYLAXIS
     Dosage: 600 MG, 2 IN 1 DAY, ORAL
     Route: 048
     Dates: start: 20030622, end: 20030625

REACTIONS (1)
  - STEVENS-JOHNSON SYNDROME [None]
